FAERS Safety Report 15470476 (Version 1)
Quarter: 2018Q4

REPORT INFORMATION
  Report Type: Spontaneous
  Country: ES (occurrence: ES)
  Receive Date: 20181005
  Receipt Date: 20181005
  Transmission Date: 20190205
  Serious: Yes (Other)
  Sender: FDA-Public Use
  Company Number: ES-SA-2018SA270401

PATIENT
  Sex: Male

DRUGS (2)
  1. APIDRA [Suspect]
     Active Substance: INSULIN GLULISINE
     Indication: DIABETES MELLITUS
     Dosage: UNK UNK, UNK
     Route: 058
  2. TRESIBA [Concomitant]
     Active Substance: INSULIN DEGLUDEC
     Indication: DIABETES MELLITUS
     Dosage: UNK
     Route: 058

REACTIONS (5)
  - Sight disability [Not Recovered/Not Resolved]
  - Device issue [Unknown]
  - Product dose omission [Unknown]
  - Hyperglycaemia [Not Recovered/Not Resolved]
  - Cataract [Unknown]
